FAERS Safety Report 18138435 (Version 1)
Quarter: 2020Q3

REPORT INFORMATION
  Report Type: Report from Study
  Country: US (occurrence: US)
  Receive Date: 20200812
  Receipt Date: 20200812
  Transmission Date: 20201103
  Serious: Yes (Other)
  Sender: FDA-Public Use
  Company Number: US-ROCHE-2397549

PATIENT
  Age: 75 Year
  Sex: Female
  Weight: 81.19 kg

DRUGS (11)
  1. VESICARE [Concomitant]
     Active Substance: SOLIFENACIN SUCCINATE
  2. COBIMETINIB. [Suspect]
     Active Substance: COBIMETINIB
     Indication: CHOLANGIOCARCINOMA
     Dosage: MOST RECENT DOSE ON 21/OCT/2018
     Route: 048
     Dates: start: 20180913
  3. ZOCOR [Concomitant]
     Active Substance: SIMVASTATIN
  4. ATENOLOL. [Concomitant]
     Active Substance: ATENOLOL
  5. TRIAMTERENE. [Concomitant]
     Active Substance: TRIAMTERENE
  6. ZANTAC [Concomitant]
     Active Substance: RANITIDINE HYDROCHLORIDE
  7. IMODIUM [Concomitant]
     Active Substance: LOPERAMIDE HYDROCHLORIDE
  8. LISINOPRIL. [Concomitant]
     Active Substance: LISINOPRIL
  9. NORCO [Concomitant]
     Active Substance: ACETAMINOPHEN\HYDROCODONE BITARTRATE
  10. ATEZOLIZUMAB. [Suspect]
     Active Substance: ATEZOLIZUMAB
     Indication: CHOLANGIOCARCINOMA
     Dosage: MOST RECENT ON 10/OCT/2018
     Route: 042
     Dates: start: 20180913
  11. TRAZODONE [Concomitant]
     Active Substance: TRAZODONE HYDROCHLORIDE

REACTIONS (7)
  - Diarrhoea [Unknown]
  - Abdominal pain [Unknown]
  - Oesophagitis [Unknown]
  - Ascites [Unknown]
  - Lymphocyte count decreased [Unknown]
  - Hypoalbuminaemia [Recovered/Resolved]
  - Hyponatraemia [Unknown]

NARRATIVE: CASE EVENT DATE: 20181023
